FAERS Safety Report 4540437-3 (Version None)
Quarter: 2004Q4

REPORT INFORMATION
  Report Type: 
  Country: None (occurrence: None)
  Receive Date: 20041228
  Receipt Date: 20041208
  Transmission Date: 20050328
  Serious: Yes (Hospitalization, Other)
  Sender: FDA-Public Use
  Company Number: 2004S1003632

PATIENT
  Age: 52 Year
  Sex: Male

DRUGS (6)
  1. MICARDIS [Suspect]
     Dates: start: 20041108
  2. COZAAR [Suspect]
     Dates: start: 20041108
  3. METOLAZONE [Suspect]
     Dates: start: 20041107
  4. FUROSEMIDE [Suspect]
     Dates: start: 20041101, end: 20041108
  5. METOPROLOL [Concomitant]
  6. VERAPAMIL [Concomitant]

REACTIONS (13)
  - ASTHENIA [None]
  - ATRIAL NATRIURETIC PEPTIDE INCREASED [None]
  - BLOOD CREATINE PHOSPHOKINASE MB INCREASED [None]
  - CARDIAC FAILURE [None]
  - DIZZINESS [None]
  - DYSPNOEA EXERTIONAL [None]
  - ELECTROCARDIOGRAM ST SEGMENT DEPRESSION [None]
  - HYPERTENSION [None]
  - OEDEMA PERIPHERAL [None]
  - ORTHOPNOEA [None]
  - RENAL FAILURE ACUTE [None]
  - SYNCOPE [None]
  - TROPONIN INCREASED [None]
